FAERS Safety Report 7418343-6 (Version None)
Quarter: 2011Q2

REPORT INFORMATION
  Report Type: 
  Country: None (occurrence: None)
  Receive Date: 20110415
  Receipt Date: 20110408
  Transmission Date: 20111010
  Serious: Yes (Death)
  Sender: FDA-Public Use
  Company Number: A0921944A

PATIENT
  Age: 49 Year
  Sex: Female

DRUGS (6)
  1. MIDAZOLAM [Concomitant]
     Route: 065
  2. ROCURONIUM [Concomitant]
     Route: 065
  3. FENTANYL [Concomitant]
     Route: 065
  4. FLOLAN [Suspect]
     Indication: PRODUCT USED FOR UNKNOWN INDICATION
     Route: 055
  5. LEVOFLOXACIN [Concomitant]
     Route: 065
  6. METRONIDAZOLE [Concomitant]
     Route: 065

REACTIONS (3)
  - OFF LABEL USE [None]
  - MULTI-ORGAN FAILURE [None]
  - HYPOTENSION [None]
